FAERS Safety Report 6499775-X (Version None)
Quarter: 2009Q4

REPORT INFORMATION
  Report Type: 
  Country: None (occurrence: None)
  Receive Date: 20091214
  Receipt Date: 20091207
  Transmission Date: 20100525
  Serious: Yes (Other)
  Sender: FDA-Public Use
  Company Number: 2009SP040413

PATIENT
  Age: 59 Year
  Sex: Male
  Weight: 147.8726 kg

DRUGS (2)
  1. PEG-INTRON [Suspect]
     Indication: HEPATITIS C
     Dosage: SC
     Route: 058
     Dates: start: 20080801
  2. RIBAVIRIN [Suspect]
     Indication: HEPATITIS C
     Dosage: PO
     Route: 048
     Dates: start: 20080801

REACTIONS (11)
  - CLAUSTROPHOBIA [None]
  - CONCUSSION [None]
  - CONFUSIONAL STATE [None]
  - CRYING [None]
  - FEAR [None]
  - HEAD INJURY [None]
  - HYPOPHAGIA [None]
  - PANIC REACTION [None]
  - PARANOIA [None]
  - TREATMENT NONCOMPLIANCE [None]
  - WEIGHT DECREASED [None]
